FAERS Safety Report 6353469-X (Version None)
Quarter: 2009Q3

REPORT INFORMATION
  Report Type: 
  Country: None (occurrence: None)
  Receive Date: 20090912
  Receipt Date: 20090622
  Transmission Date: 20100115
  Serious: No
  Sender: FDA-Public Use
  Company Number: US-ABBOTT-08P-163-0472857-00

PATIENT
  Sex: Female
  Weight: 65.83 kg

DRUGS (4)
  1. HUMIRA [Suspect]
     Indication: RHEUMATOID ARTHRITIS
     Route: 058
     Dates: start: 20080701, end: 20080801
  2. HUMIRA [Suspect]
     Route: 058
     Dates: start: 20080901
  3. METHYLPREDNISOLONE ACETATE [Concomitant]
     Indication: INFLAMMATION
     Route: 048
     Dates: start: 20080401
  4. MYCOPHENOLATE MOFETIL [Concomitant]
     Indication: AUTOIMMUNE HEPATITIS
     Route: 048
     Dates: start: 20080915

REACTIONS (3)
  - DRUG DELIVERY SYSTEM MALFUNCTION [None]
  - INCORRECT DOSE ADMINISTERED [None]
  - UPPER RESPIRATORY TRACT INFECTION [None]
